FAERS Safety Report 22704722 (Version 3)
Quarter: 2023Q4

REPORT INFORMATION
  Report Type: Spontaneous
  Country: US (occurrence: US)
  Receive Date: 20230714
  Receipt Date: 20231109
  Transmission Date: 20240110
  Serious: No
  Sender: FDA-Public Use
  Company Number: US-LUPIN PHARMACEUTICALS INC.-2023-05675

PATIENT

DRUGS (2)
  1. VANCOMYCIN HYDROCHLORIDE [Suspect]
     Active Substance: VANCOMYCIN HYDROCHLORIDE
     Indication: Bacterial diarrhoea
     Dosage: 125 MG, Q4H
     Route: 048
  2. PROLIA [Concomitant]
     Active Substance: DENOSUMAB
     Indication: Osteoporosis
     Dosage: UNK EVERY 6 MONTHS
     Route: 065

REACTIONS (4)
  - Product residue present [Unknown]
  - Product physical issue [Unknown]
  - Product solubility abnormal [Unknown]
  - No adverse event [Unknown]
